FAERS Safety Report 5117953-9 (Version None)
Quarter: 2006Q3

REPORT INFORMATION
  Report Type: 
  Country: None (occurrence: None)
  Receive Date: 20060926
  Receipt Date: 20060913
  Transmission Date: 20061208
  Serious: Yes (Other)
  Sender: FDA-Public Use
  Company Number: 2006113562

PATIENT
  Age: 18 Year
  Sex: Male

DRUGS (1)
  1. SOLU-MEDROL [Suspect]
     Indication: WRIST SURGERY
     Dosage: 160 MG (80 MG, 2 IN 1 D), INTRAVENOUS
     Route: 042
     Dates: start: 20060801

REACTIONS (2)
  - OSTEOMYELITIS [None]
  - POSTOPERATIVE INFECTION [None]
